FAERS Safety Report 6094663-5 (Version None)
Quarter: 2009Q1

REPORT INFORMATION
  Report Type: 
  Country: None (occurrence: None)
  Receive Date: 20090224
  Receipt Date: 20081226
  Transmission Date: 20090719
  Serious: No
  Sender: FDA-Public Use
  Company Number: JP 2008 0061

PATIENT
  Age: 61 Year
  Sex: Male

DRUGS (11)
  1. OXILAN-300 [Suspect]
     Indication: ARTERIOGRAM CORONARY
     Dosage: 15 ML PER DAY INTRA-ARTERIAL
     Route: 013
     Dates: start: 20081226, end: 20081226
  2. ISOSORBIDE DINITRATE [Suspect]
     Dosage: PER DAY INTRA-ARTERIAL
     Route: 013
     Dates: start: 20081226, end: 20081226
  3. HEPARIN [Suspect]
     Dosage: PER DAY INTRA-ARTERIAL
     Route: 013
     Dates: start: 20081226, end: 20081226
  4. AMARYL [Concomitant]
  5. METFORMIN HYDROCHLORIDE [Concomitant]
  6. -ALUMINIUM HYDROXIDE GEL -ALUMINIUM HYDROXIDE [Concomitant]
  7. -DIBETOS -BUFORMINE HYDROCHLORIDE [Concomitant]
  8. LIPITOR [Concomitant]
  9. ALLOPURINOL [Concomitant]
  10. CANDESARTAN CILEXETIL [Concomitant]
  11. LENDORM [Concomitant]

REACTIONS (8)
  - ANAPHYLACTIC SHOCK [None]
  - BLOOD POTASSIUM DECREASED [None]
  - DEHYDRATION [None]
  - ELECTROCARDIOGRAM ST SEGMENT ELEVATION [None]
  - NO THERAPEUTIC RESPONSE [None]
  - PLATELET COUNT DECREASED [None]
  - RED BLOOD CELL COUNT DECREASED [None]
  - VASODILATATION [None]
